FAERS Safety Report 4403322-3 (Version None)
Quarter: 2004Q3

REPORT INFORMATION
  Report Type: 
  Country: None (occurrence: None)
  Receive Date: 20040721
  Receipt Date: 20040421
  Transmission Date: 20050211
  Serious: No
  Sender: FDA-Public Use
  Company Number: US-GLAXOSMITHKLINE-A0507944A

PATIENT
  Age: 47 Year
  Sex: Female

DRUGS (4)
  1. IMITREX [Suspect]
     Indication: MIGRAINE
     Dosage: 100MG AS REQUIRED
     Route: 048
  2. PROPRANOLOL [Concomitant]
  3. LEXAPRO [Concomitant]
  4. METHADONE HCL [Concomitant]

REACTIONS (2)
  - FATIGUE [None]
  - HALLUCINATION [None]
